FAERS Safety Report 20515922 (Version 2)
Quarter: 2022Q2

REPORT INFORMATION
  Report Type: Report from Study
  Country: JP (occurrence: JP)
  Receive Date: 20220225
  Receipt Date: 20220408
  Transmission Date: 20220720
  Serious: Yes (Hospitalization, Other)
  Sender: FDA-Public Use
  Company Number: JP-JNJFOC-20220248367

PATIENT
  Age: 52 Year
  Sex: Male

DRUGS (14)
  1. SYMTUZA [Suspect]
     Active Substance: COBICISTAT\DARUNAVIR\EMTRICITABINE\TENOFOVIR ALAFENAMIDE
     Indication: HIV infection
     Route: 048
     Dates: start: 20200603, end: 20201029
  2. BIKTARVY [Suspect]
     Active Substance: BICTEGRAVIR SODIUM\EMTRICITABINE\TENOFOVIR ALAFENAMIDE FUMARATE
     Indication: HIV infection
     Route: 048
     Dates: start: 20201030
  3. ATOVAQUONE [Suspect]
     Active Substance: ATOVAQUONE
     Indication: Pneumocystis jirovecii pneumonia
     Dosage: DOSE UNKNOWN
     Route: 048
     Dates: start: 20200611, end: 20200708
  4. SULFAMETHOXAZOLE\TRIMETHOPRIM [Concomitant]
     Active Substance: SULFAMETHOXAZOLE\TRIMETHOPRIM
     Indication: Prophylaxis
     Dosage: DOSE UNKNOWN
     Route: 048
     Dates: start: 20200530, end: 20200610
  5. SULFAMETHOXAZOLE\TRIMETHOPRIM [Concomitant]
     Active Substance: SULFAMETHOXAZOLE\TRIMETHOPRIM
     Indication: Pneumocystis jirovecii pneumonia
     Dosage: DOSE UNKNOWN
     Route: 048
     Dates: start: 20200709, end: 20210122
  6. SULFAMETHOXAZOLE\TRIMETHOPRIM [Concomitant]
     Active Substance: SULFAMETHOXAZOLE\TRIMETHOPRIM
     Indication: Prophylaxis
     Dosage: DOSE UNKNOWN
     Route: 048
     Dates: start: 20200512, end: 20200529
  7. SOLU-MEDROL [Concomitant]
     Active Substance: METHYLPREDNISOLONE SODIUM SUCCINATE
     Indication: Pneumocystis jirovecii pneumonia
     Dosage: DOSE UNKNOWN
     Route: 042
     Dates: start: 20200610, end: 20200612
  8. SOLU-MEDROL [Concomitant]
     Active Substance: METHYLPREDNISOLONE SODIUM SUCCINATE
     Indication: Pneumocystis jirovecii pneumonia
     Dosage: DOSE UNKNOWN,GRADUALLY DECREASED
     Route: 042
     Dates: start: 20200613, end: 20200616
  9. PREDONINE [Concomitant]
     Active Substance: PREDNISOLONE
     Indication: Pneumocystis jirovecii pneumonia
     Dosage: DOSE UNKNOWN
     Route: 065
     Dates: start: 20200617, end: 20200628
  10. VALGANCICLOVIR [Concomitant]
     Active Substance: VALGANCICLOVIR
     Indication: Cytomegalovirus chorioretinitis
     Dosage: DOSE UNKNOWN
     Route: 048
     Dates: start: 20200731, end: 20200924
  11. LYRICA [Concomitant]
     Active Substance: PREGABALIN
     Dosage: DOSE UNKNOWN
     Route: 048
     Dates: start: 20200630
  12. METHYLCOBALAMIN [Concomitant]
     Active Substance: METHYLCOBALAMIN
     Dosage: DOSE UNKNOWN
     Route: 065
     Dates: start: 20200711
  13. CYMBALTA [Concomitant]
     Active Substance: DULOXETINE HYDROCHLORIDE
     Dosage: DOSE UNKNOWN
     Route: 048
     Dates: start: 20201112
  14. NEXIUM [Concomitant]
     Active Substance: ESOMEPRAZOLE MAGNESIUM
     Dosage: DOSE UNKNOWN
     Route: 048
     Dates: start: 20200608, end: 20210415

REACTIONS (6)
  - Pneumocystis jirovecii pneumonia [Recovering/Resolving]
  - Cytomegalovirus chorioretinitis [Recovered/Resolved]
  - Immune reconstitution inflammatory syndrome [Recovered/Resolved]
  - Hepatic enzyme increased [Recovered/Resolved]
  - White blood cell count decreased [Recovered/Resolved]
  - Renal impairment [Not Recovered/Not Resolved]

NARRATIVE: CASE EVENT DATE: 20200609
